FAERS Safety Report 19449539 (Version 1)
Quarter: 2021Q2

REPORT INFORMATION
  Report Type: Spontaneous
  Country: US (occurrence: US)
  Receive Date: 20210622
  Receipt Date: 20210622
  Transmission Date: 20210717
  Serious: No
  Sender: FDA-Public Use
  Company Number: US-ASTELLAS-2021US001859

PATIENT
  Sex: Female

DRUGS (2)
  1. VESICARE [Suspect]
     Active Substance: SOLIFENACIN SUCCINATE
     Indication: HYPERTONIC BLADDER
     Route: 048
     Dates: start: 20210106
  2. VESICARE [Suspect]
     Active Substance: SOLIFENACIN SUCCINATE
     Route: 048

REACTIONS (11)
  - Dysphagia [Unknown]
  - Vision blurred [Unknown]
  - Oral disorder [Unknown]
  - Dry mouth [Recovering/Resolving]
  - Constipation [Unknown]
  - Increased viscosity of upper respiratory secretion [Unknown]
  - Oropharyngeal discomfort [Unknown]
  - Fluid retention [Unknown]
  - Palpitations [Unknown]
  - Wrong technique in product usage process [Unknown]
  - Swelling [Unknown]
